FAERS Safety Report 12529221 (Version 1)
Quarter: 2016Q3

REPORT INFORMATION
  Report Type: Spontaneous
  Country: US (occurrence: US)
  Receive Date: 20160705
  Receipt Date: 20160705
  Transmission Date: 20161109
  Serious: No
  Sender: FDA-Public Use
  Company Number: US-PFIZER INC-3075781

PATIENT
  Age: 41 Year
  Sex: Female
  Weight: 108.6 kg

DRUGS (1)
  1. LIDOCAINE HCL [Suspect]
     Active Substance: LIDOCAINE HYDROCHLORIDE
     Indication: ANALGESIC THERAPY
     Dosage: 15 ML, ONE TIME
     Route: 023
     Dates: start: 20150924, end: 20150924

REACTIONS (2)
  - Product quality issue [Recovered/Resolved]
  - Drug ineffective [Recovered/Resolved]

NARRATIVE: CASE EVENT DATE: 20150924
